FAERS Safety Report 20565362 (Version 1)
Quarter: 2022Q1

REPORT INFORMATION
  Report Type: Spontaneous
  Country: US (occurrence: US)
  Receive Date: 20220308
  Receipt Date: 20220308
  Transmission Date: 20220423
  Serious: Yes (Hospitalization)
  Sender: FDA-Public Use
  Company Number: US-Accord-256639

PATIENT
  Sex: Female

DRUGS (3)
  1. CLOZAPINE [Suspect]
     Active Substance: CLOZAPINE
     Indication: Schizoaffective disorder bipolar type
     Route: 048
     Dates: start: 2014, end: 202110
  2. TEGRETOL [Concomitant]
     Active Substance: CARBAMAZEPINE
  3. HALDOL [Concomitant]
     Active Substance: HALOPERIDOL

REACTIONS (1)
  - Psychiatric symptom [Unknown]
